FAERS Safety Report 5640946-X (Version None)
Quarter: 2008Q1

REPORT INFORMATION
  Report Type: 
  Country: None (occurrence: None)
  Receive Date: 20080227
  Receipt Date: 20080222
  Transmission Date: 20080703
  Serious: Yes (Hospitalization)
  Sender: FDA-Public Use
  Company Number: CA-MERCK-0802CAN00095

PATIENT
  Sex: Male

DRUGS (5)
  1. HYZAAR [Suspect]
     Indication: HYPERTENSION
     Route: 048
  2. HYZAAR [Suspect]
     Route: 048
  3. NIFEDIPINE [Concomitant]
     Indication: HYPERTENSION
     Route: 065
     Dates: start: 20080101, end: 20080101
  4. ASPIRIN [Concomitant]
     Route: 065
  5. VITAMINS (UNSPECIFIED) [Concomitant]
     Route: 065

REACTIONS (7)
  - DIZZINESS [None]
  - DYSGEUSIA [None]
  - FATIGUE [None]
  - GLOSSODYNIA [None]
  - MALAISE [None]
  - PRIAPISM [None]
  - STOMATITIS [None]
